FAERS Safety Report 24641762 (Version 1)
Quarter: 2024Q4

REPORT INFORMATION
  Report Type: Spontaneous
  Country: US (occurrence: None)
  Receive Date: 20241118
  Receipt Date: 20241118
  Transmission Date: 20250115
  Serious: Yes (Other)
  Sender: Public
  Company Number: None

PATIENT
  Age: 46 Year
  Sex: Female
  Weight: 54.9 kg

DRUGS (11)
  1. PAXLOVID [Suspect]
     Active Substance: NIRMATRELVIR\RITONAVIR
     Indication: COVID-19 treatment
     Dosage: OTHER QUANTITY : 3 CAPSULE(S);?FREQUENCY : TWICE A DAY;?
     Route: 048
     Dates: start: 20241030, end: 20241104
  2. BUDESONIDE [Suspect]
     Active Substance: BUDESONIDE
     Indication: Colitis microscopic
     Dosage: OTHER QUANTITY : 3 CAPSULE(S);?
     Route: 048
  3. CARVEDILOL [Concomitant]
     Active Substance: CARVEDILOL
  4. HYDROCHLOROTHIAZIDE [Concomitant]
     Active Substance: HYDROCHLOROTHIAZIDE
  5. INCASSIA [Concomitant]
     Active Substance: NORETHINDRONE
  6. TIZANIDINE [Concomitant]
     Active Substance: TIZANIDINE
  7. ASPIRIN [Concomitant]
     Active Substance: ASPIRIN
  8. VITAMIN D [Concomitant]
     Active Substance: VITAMIN D NOS
  9. VITAMINS [Concomitant]
     Active Substance: VITAMINS
  10. AMBEREN [Concomitant]
  11. ESOMEPRAZOLE [Concomitant]
     Active Substance: ESOMEPRAZOLE

REACTIONS (10)
  - Product use issue [None]
  - Product communication issue [None]
  - Product prescribing issue [None]
  - Memory impairment [None]
  - Disorientation [None]
  - Feeling abnormal [None]
  - Fluid retention [None]
  - Palpitations [None]
  - Abdominal discomfort [None]
  - Drug interaction [None]

NARRATIVE: CASE EVENT DATE: 20241107
